FAERS Safety Report 6336996-0 (Version None)
Quarter: 2009Q3

REPORT INFORMATION
  Report Type: 
  Country: None (occurrence: None)
  Receive Date: 20090901
  Receipt Date: 20090819
  Transmission Date: 20100115
  Serious: Yes (Other)
  Sender: FDA-Public Use
  Company Number: TR-GENENTECH-289362

PATIENT
  Age: 30 Year
  Sex: Female
  Weight: 74 kg

DRUGS (4)
  1. XOLAIR [Suspect]
     Indication: ASTHMA
     Dosage: 225 MG, Q2W
     Route: 058
     Dates: start: 20080501
  2. FORADIL [Concomitant]
     Indication: DRUG USE FOR UNKNOWN INDICATION
  3. MONTELUKAST SODIUM [Concomitant]
     Indication: DRUG USE FOR UNKNOWN INDICATION
  4. VENTOLIN [Concomitant]
     Indication: DRUG USE FOR UNKNOWN INDICATION

REACTIONS (4)
  - ANGINA PECTORIS [None]
  - CHEST PAIN [None]
  - PAIN IN EXTREMITY [None]
  - VASOSPASM [None]
